FAERS Safety Report 7688426-4 (Version None)
Quarter: 2011Q3

REPORT INFORMATION
  Report Type: 
  Country: None (occurrence: None)
  Receive Date: 20110817
  Receipt Date: 20110810
  Transmission Date: 20111222
  Serious: Yes (Hospitalization)
  Sender: FDA-Public Use
  Company Number: TW-ROCHE-793485

PATIENT

DRUGS (1)
  1. AVASTIN [Suspect]
     Route: 042
     Dates: start: 20110701, end: 20110701

REACTIONS (2)
  - WOUND HAEMORRHAGE [None]
  - COLOSTOMY [None]
